FAERS Safety Report 7824778-X (Version None)
Quarter: 2011Q4

REPORT INFORMATION
  Report Type: 
  Country: None (occurrence: None)
  Receive Date: 20111019
  Receipt Date: 20110117
  Transmission Date: 20120403
  Serious: No
  Sender: FDA-Public Use
  Company Number: US-BRISTOL-MYERS SQUIBB COMPANY-15489933

PATIENT
  Age: 48 Year
  Sex: Male
  Weight: 110 kg

DRUGS (3)
  1. ADVICOR [Concomitant]
     Dosage: 1 DF = 500/20 UNITS NOS
  2. ALLOPURINOL [Concomitant]
  3. AVALIDE [Suspect]

REACTIONS (1)
  - BLOOD PRESSURE INCREASED [None]
